FAERS Safety Report 26032639 (Version 1)
Quarter: 2025Q4

REPORT INFORMATION
  Report Type: Spontaneous
  Country: US (occurrence: US)
  Receive Date: 20251112
  Receipt Date: 20251112
  Transmission Date: 20260118
  Serious: No
  Sender: GALDERMA
  Company Number: US-GALDERMA-US2025020927

PATIENT

DRUGS (1)
  1. BENZOYL PEROXIDE [Suspect]
     Active Substance: BENZOYL PEROXIDE
     Indication: Acne
     Dosage: 1 DOSAGE FORM, TWICE OVER THE COURSE OF A WEEK AND A HALF
     Route: 061
     Dates: start: 20251006, end: 20251015

REACTIONS (7)
  - Skin exfoliation [Recovered/Resolved]
  - Madarosis [Recovered/Resolved]
  - Blister [Recovered/Resolved]
  - Lip erythema [Recovered/Resolved]
  - Rash [Recovered/Resolved]
  - Skin haemorrhage [Recovered/Resolved]
  - Urticaria [Not Recovered/Not Resolved]

NARRATIVE: CASE EVENT DATE: 20251015
